FAERS Safety Report 7856928-3 (Version None)
Quarter: 2011Q4

REPORT INFORMATION
  Report Type: 
  Country: None (occurrence: None)
  Receive Date: 20111027
  Receipt Date: 20111014
  Transmission Date: 20120403
  Serious: Yes (Life-Threatening, Hospitalization, Disabling, Other)
  Sender: FDA-Public Use
  Company Number: FR-AMGEN-FRASP2011034677

PATIENT
  Age: 82 Year
  Sex: Female
  Weight: 60 kg

DRUGS (5)
  1. CALCIUM CARBONATE [Concomitant]
     Indication: OSTEOPOROSIS
     Dosage: 1000 MG, 1X/DAY
     Dates: start: 20101109
  2. ACETAMINOPHEN AND CODEINE PHOSPHATE [Concomitant]
     Dosage: ONE TABLET DAILY
     Route: 048
  3. ENBREL [Suspect]
     Indication: RHEUMATOID ARTHRITIS
     Dosage: 50 MG, WEEKLY
     Route: 058
     Dates: start: 20101209
  4. PROTELOS [Concomitant]
     Indication: OSTEOPOROSIS
     Dosage: 1 SACHET DAILY
     Route: 048
  5. METHOTREXATE SODIUM [Concomitant]
     Indication: RHEUMATOID ARTHRITIS
     Dosage: 10 MG, WEEKLY
     Route: 058
     Dates: start: 20101209

REACTIONS (5)
  - CEREBRAL ATROPHY [None]
  - DEPRESSED MOOD [None]
  - HEMIPLEGIA [None]
  - ARRHYTHMIA [None]
  - ISCHAEMIC STROKE [None]
